FAERS Safety Report 5530808-0 (Version None)
Quarter: 2007Q4

REPORT INFORMATION
  Report Type: 
  Country: None (occurrence: None)
  Receive Date: 20071130
  Receipt Date: 20071123
  Transmission Date: 20080405
  Serious: Yes (Other)
  Sender: FDA-Public Use
  Company Number: PHBS2007CH15407

PATIENT
  Age: 54 Year
  Sex: Male

DRUGS (2)
  1. MIACALCIN [Suspect]
     Indication: PERIARTHRITIS
     Dosage: 200 IU, BID
     Route: 045
     Dates: start: 20070907, end: 20070909
  2. PRAVASTATIN [Concomitant]
     Indication: HYPERCHOLESTEROLAEMIA
     Dosage: 40 MG/DAY

REACTIONS (3)
  - APPLICATION SITE IRRITATION [None]
  - FACIAL PALSY [None]
  - PAIN IN EXTREMITY [None]
